FAERS Safety Report 8307095-3 (Version None)
Quarter: 2012Q2

REPORT INFORMATION
  Report Type: 
  Country: None (occurrence: None)
  Receive Date: 20120424
  Receipt Date: 20120418
  Transmission Date: 20120825
  Serious: Yes (Hospitalization)
  Sender: FDA-Public Use
  Company Number: JP-PFIZER INC-2012061369

PATIENT
  Age: 80 Year
  Sex: Female
  Weight: 58 kg

DRUGS (13)
  1. CARVEDILOL [Concomitant]
     Indication: CARDIAC FAILURE
     Dosage: UNK
     Route: 048
  2. LEVOTHYROXINE SODIUM [Concomitant]
     Indication: HYPOTHYROIDISM
     Dosage: UNK
     Route: 048
  3. ALLOPURINOL [Concomitant]
     Indication: HYPERURICAEMIA
     Dosage: UNK
     Route: 048
  4. WARFARIN [Concomitant]
     Indication: ATRIAL FIBRILLATION
     Dosage: UNK
  5. SILDENAFIL CITRATE [Suspect]
     Indication: PULMONARY HYPERTENSION
     Dosage: 20 MG, 3X/DAY
     Route: 048
     Dates: start: 20110728, end: 20110929
  6. COMELIAN [Concomitant]
     Indication: PROTEINURIA
     Dosage: UNK
     Route: 048
  7. ISOSORBIDE DINITRATE [Concomitant]
     Indication: CARDIAC FAILURE
     Dosage: UNK
     Route: 061
  8. NEO-MINOPHAGEN C [Concomitant]
     Indication: HEPATITIS C
     Dosage: UNK
     Route: 042
  9. URSO 250 [Concomitant]
     Indication: HEPATITIS C
     Dosage: UNK
     Route: 048
  10. LOSARTAN POTASSIUM [Concomitant]
     Indication: HYPERTENSION
     Dosage: UNK
     Route: 048
  11. LAFUTIDINE [Concomitant]
     Indication: HIATUS HERNIA
     Dosage: UNK
     Route: 048
  12. AMINOLEBAN EN [Concomitant]
     Indication: HEPATITIS C
     Dosage: UNK
     Route: 048
  13. TORASEMIDE [Concomitant]
     Indication: CARDIAC FAILURE
     Dosage: UNK
     Route: 048

REACTIONS (1)
  - HEPATIC FUNCTION ABNORMAL [None]
